FAERS Safety Report 5620724-8 (Version None)
Quarter: 2008Q1

REPORT INFORMATION
  Report Type: 
  Country: None (occurrence: None)
  Receive Date: 20080208
  Receipt Date: 20080207
  Transmission Date: 20080703
  Serious: Yes (Hospitalization)
  Sender: FDA-Public Use
  Company Number: US-MERCK-0801USA03312

PATIENT
  Age: 83 Year
  Sex: Female

DRUGS (4)
  1. VYTORIN [Suspect]
     Indication: HYPERLIPIDAEMIA
     Route: 048
     Dates: start: 20071001, end: 20080101
  2. LASIX [Concomitant]
     Route: 065
  3. ALDACTONE [Concomitant]
     Route: 065
  4. PROCARDIA [Concomitant]
     Route: 065

REACTIONS (8)
  - ABDOMINAL DISTENSION [None]
  - ANXIETY [None]
  - CHOLECYSTITIS [None]
  - CHOLELITHIASIS [None]
  - MUSCLE SPASMS [None]
  - PAIN [None]
  - RESPIRATORY ARREST [None]
  - WEIGHT DECREASED [None]
